FAERS Safety Report 11038020 (Version 1)
Quarter: 2015Q2

REPORT INFORMATION
  Report Type: Other
  Country: DE (occurrence: DE)
  Receive Date: 20150416
  Receipt Date: 20150416
  Transmission Date: 20150821
  Serious: Yes (Death)
  Sender: FDA-Public Use
  Company Number: DE-MYLANLABS-2015M1011222

PATIENT

DRUGS (3)
  1. XARELTO [Concomitant]
     Active Substance: RIVAROXABAN
     Indication: ATRIAL FIBRILLATION
     Dosage: 15 MG, UNK
     Route: 048
     Dates: end: 20150315
  2. DIGIMERCK [Concomitant]
     Active Substance: DIGITOXIN
     Indication: ATRIAL FIBRILLATION
     Dosage: 0.07 MG, QD (DAILY DOSE: 0.07 MG MILLGRAM(S) EVERY DAYS)
     Route: 048
     Dates: end: 20150315
  3. METFORMIN [Suspect]
     Active Substance: METFORMIN HYDROCHLORIDE
     Indication: DIABETES MELLITUS
     Dosage: 850 MG, TID (DAILY DOSE: 2550 MG MILLGRAM(S) EVERY DAYS)
     Route: 048
     Dates: end: 20150315

REACTIONS (5)
  - Loss of consciousness [Fatal]
  - Diarrhoea [Fatal]
  - Lactic acidosis [Fatal]
  - Resuscitation [Fatal]
  - Vomiting [Fatal]

NARRATIVE: CASE EVENT DATE: 20150315
